FAERS Safety Report 9858010 (Version 1)
Quarter: 2014Q1

REPORT INFORMATION
  Report Type: Spontaneous
  Country: NL (occurrence: NL)
  Receive Date: 20140131
  Receipt Date: 20140131
  Transmission Date: 20141002
  Serious: Yes (Hospitalization)
  Sender: FDA-Public Use
  Company Number: PHHY2014NL009930

PATIENT
  Sex: Male
  Weight: 80 kg

DRUGS (2)
  1. CARBAMAZEPINE [Suspect]
     Indication: PARTIAL SEIZURES
     Dosage: 1 DF, BID (2DD1); TABLET
     Dates: start: 20030101, end: 20140104
  2. DEPAKINE CHRONO [Interacting]
     Indication: PARTIAL SEIZURES
     Dosage: 1 DF, BID
     Dates: start: 20030101, end: 20140104

REACTIONS (5)
  - Pancreatic calcification [Recovering/Resolving]
  - Pancreatitis chronic [Recovering/Resolving]
  - Flank pain [Unknown]
  - Nausea [Unknown]
  - Vomiting [Unknown]
